FAERS Safety Report 8389901-X (Version None)
Quarter: 2012Q2

REPORT INFORMATION
  Report Type: 
  Country: None (occurrence: None)
  Receive Date: 20120522
  Receipt Date: 20120508
  Transmission Date: 20120825
  Serious: Yes (Other)
  Sender: FDA-Public Use
  Company Number: ENTC2012-0204

PATIENT
  Age: 83 Year
  Sex: Male

DRUGS (1)
  1. STALEVO 100 [Suspect]
     Indication: PARKINSON'S DISEASE
     Dosage: 8 TABLETS (150/37.5/200 MG) DAILY, ORAL
     Route: 048
     Dates: start: 20100401

REACTIONS (1)
  - HEARING IMPAIRED [None]
